FAERS Safety Report 7520357-2 (Version None)
Quarter: 2011Q2

REPORT INFORMATION
  Report Type: 
  Country: None (occurrence: None)
  Receive Date: 20110602
  Receipt Date: 20110523
  Transmission Date: 20111010
  Serious: Yes (Other)
  Sender: FDA-Public Use
  Company Number: PHHY2011US43910

PATIENT
  Age: 61 Year
  Sex: Female

DRUGS (9)
  1. PREDNISONE [Suspect]
     Dosage: 10 MG/DAY
  2. HYDROXYCHLOROQUINE SULFATE [Suspect]
     Indication: SKIN DISORDER
     Dosage: 200 MG, BID
     Route: 048
  3. TETRACYCLINE [Suspect]
  4. MYCOPHENOLATE MEFETIL [Suspect]
     Indication: EPIDERMOLYSIS BULLOSA
     Dosage: 1000 MG/DAY
  5. PREDNISONE [Suspect]
     Dosage: 5 MG, (BELOW)
  6. DAPSONE [Suspect]
  7. PREDNISONE [Suspect]
     Dosage: 40 MG/DAY
  8. AZATHIOPRINE [Suspect]
     Indication: SYSTEMIC LUPUS ERYTHEMATOSUS
  9. MYCOPHENOLATE MEFETIL [Suspect]
     Dosage: 2000 MG/DAY

REACTIONS (10)
  - SKIN LESION [None]
  - HEPATIC ENZYME INCREASED [None]
  - PYREXIA [None]
  - ABDOMINAL PAIN [None]
  - DECREASED APPETITE [None]
  - MYALGIA [None]
  - SYSTEMIC LUPUS ERYTHEMATOSUS [None]
  - BLISTER [None]
  - LEUKOPENIA [None]
  - NAUSEA [None]
